FAERS Safety Report 5520820-X (Version None)
Quarter: 2007Q4

REPORT INFORMATION
  Report Type: 
  Country: None (occurrence: None)
  Receive Date: 20071116
  Receipt Date: 20071116
  Transmission Date: 20080405
  Serious: No
  Sender: FDA-Public Use
  Company Number: None

PATIENT
  Sex: Male
  Weight: 81.6475 kg

DRUGS (1)
  1. ZICAM UNKNOWN ZICAM LLCPHOENIX, ARIZONA 85016 [Suspect]
     Indication: NASOPHARYNGITIS

REACTIONS (1)
  - HYPOSMIA [None]
